FAERS Safety Report 9399910 (Version 1)
Quarter: 2013Q3

REPORT INFORMATION
  Report Type: Spontaneous
  Country: US (occurrence: None)
  Receive Date: 20130710
  Receipt Date: 20130710
  Transmission Date: 20140515
  Serious: Yes (Death)
  Sender: FDA-Public Use
  Company Number: FK201302333

PATIENT
  Age: 25 Year
  Sex: Male

DRUGS (1)
  1. PROPOFOL [Suspect]
     Indication: SEDATION
     Route: 042

REACTIONS (10)
  - Hyperkalaemia [None]
  - Metabolic disorder [None]
  - Renal failure acute [None]
  - Metabolic acidosis [None]
  - Hepatitis acute [None]
  - Rhabdomyolysis [None]
  - Pulse absent [None]
  - Tachycardia [None]
  - Cardiogenic shock [None]
  - Propofol infusion syndrome [None]
